FAERS Safety Report 13071485 (Version 1)
Quarter: 2016Q4

REPORT INFORMATION
  Report Type: Spontaneous
  Country: None (occurrence: US)
  Receive Date: 20161228
  Receipt Date: 20161228
  Transmission Date: 20170207
  Serious: Yes (Hospitalization)
  Sender: FDA-Public Use
  Company Number: None

PATIENT
  Age: 54 Year
  Sex: Female
  Weight: 60 kg

DRUGS (3)
  1. CISPLATIN. [Suspect]
     Active Substance: CISPLATIN
     Dates: end: 20161014
  2. TAXOL [Suspect]
     Active Substance: PACLITAXEL
     Dates: end: 20161206
  3. CARBOPLATIN. [Suspect]
     Active Substance: CARBOPLATIN
     Dates: end: 20161206

REACTIONS (4)
  - Ureteric obstruction [None]
  - Abdominal pain [None]
  - Blood creatinine increased [None]
  - Constipation [None]

NARRATIVE: CASE EVENT DATE: 20161220
